FAERS Safety Report 6809463-5 (Version None)
Quarter: 2010Q2

REPORT INFORMATION
  Report Type: 
  Country: None (occurrence: None)
  Receive Date: 20100630
  Receipt Date: 20100622
  Transmission Date: 20101027
  Serious: Yes (Other)
  Sender: FDA-Public Use
  Company Number: JP-B.I. PHARMACEUTICALS,INC./RIDGEFIELD-2010-BP-06603YA

PATIENT
  Sex: Male
  Weight: 58 kg

DRUGS (7)
  1. HARNAL (TAMSULOSIN) ORODISPERSABLE CR [Suspect]
     Indication: BENIGN PROSTATIC HYPERPLASIA
     Dosage: 0.2 MG
     Route: 048
     Dates: start: 20100517, end: 20100520
  2. GOSHAJINKIGAN (HERBAL EXTRACT NOS) [Concomitant]
     Dates: start: 20100517, end: 20100527
  3. UBRETID (DISTIGMINE BROMIDE) [Concomitant]
     Dosage: 5 MG
  4. LEVOTHYROXINE SODIUM [Concomitant]
     Dosage: 25 MG
     Dates: start: 20100419, end: 20100527
  5. NOVOLOG [Concomitant]
  6. VOGLIBOSE (VOGLIBOSE) [Concomitant]
  7. CHOREITOUGOUSHIMOTSUTOU (HERBAL EXTRACT NOS) [Concomitant]
     Dates: start: 20100408, end: 20100517

REACTIONS (1)
  - URINARY RETENTION [None]
